FAERS Safety Report 9657718 (Version 1)
Quarter: 2013Q4

REPORT INFORMATION
  Report Type: Spontaneous
  Country: BR (occurrence: BR)
  Receive Date: 20131030
  Receipt Date: 20131030
  Transmission Date: 20140711
  Serious: Yes (Other)
  Sender: FDA-Public Use
  Company Number: PHHY2013BR122837

PATIENT
  Age: 26 Month
  Sex: Male

DRUGS (2)
  1. CATAFLAM [Suspect]
     Indication: PHARYNGITIS
     Dosage: 10 DRP, Q8H
     Route: 048
     Dates: start: 20131022, end: 20131027
  2. REDOXON [Suspect]
     Indication: PHARYNGITIS
     Dosage: 10 DRP, DAILY
     Route: 048
     Dates: start: 20131022, end: 20131027

REACTIONS (2)
  - Eye swelling [Recovered/Resolved]
  - Eye disorder [Not Recovered/Not Resolved]
